FAERS Safety Report 19367200 (Version 1)
Quarter: 2021Q2

REPORT INFORMATION
  Report Type: Spontaneous
  Country: IT (occurrence: IT)
  Receive Date: 20210603
  Receipt Date: 20210603
  Transmission Date: 20210717
  Serious: Yes (Life-Threatening, Hospitalization, Other)
  Sender: FDA-Public Use
  Company Number: IT-PURDUE-USA-2021-0266512

PATIENT
  Age: 65 Year
  Sex: Male

DRUGS (3)
  1. MORPHINE SULFATE (SIMILAR TO NDA 19?516) [Suspect]
     Active Substance: MORPHINE SULFATE
     Indication: PRODUCT USED FOR UNKNOWN INDICATION
     Dosage: 10 MG, TOTAL [LOADING DOSE]
     Route: 065
  2. HEPARIN [Concomitant]
     Active Substance: HEPARIN SODIUM
  3. TICAGRELOR. [Interacting]
     Active Substance: TICAGRELOR
     Indication: PRODUCT USED FOR UNKNOWN INDICATION
     Dosage: LOADING DOSE
     Route: 065

REACTIONS (5)
  - Drug interaction [Recovering/Resolving]
  - Therapeutic product effect delayed [Recovering/Resolving]
  - Cardiac arrest [Recovering/Resolving]
  - Vascular stent thrombosis [Recovering/Resolving]
  - Ventricular fibrillation [Recovering/Resolving]
